FAERS Safety Report 19299815 (Version 1)
Quarter: 2021Q2

REPORT INFORMATION
  Report Type: Spontaneous
  Country: US (occurrence: US)
  Receive Date: 20210525
  Receipt Date: 20210525
  Transmission Date: 20210717
  Serious: Yes (Hospitalization)
  Sender: FDA-Public Use
  Company Number: US-JNJFOC-20210529743

PATIENT
  Age: 86 Year
  Sex: Male

DRUGS (1)
  1. LISTERINE COOL MINT ANTISEPTIC [Suspect]
     Active Substance: EUCALYPTOL\MENTHOL\METHYL SALICYLATE\THYMOL
     Indication: PROPHYLAXIS
     Dosage: HALF A CAP ONCE A DAY?PRODUCT START DATE: COUPLE OF WEEKS
     Route: 065
     Dates: start: 202104

REACTIONS (2)
  - Application site hypersensitivity [Recovered/Resolved]
  - Application site swelling [Recovered/Resolved]

NARRATIVE: CASE EVENT DATE: 202104
